FAERS Safety Report 5183809-9 (Version None)
Quarter: 2006Q4

REPORT INFORMATION
  Report Type: 
  Country: None (occurrence: None)
  Receive Date: 20061220
  Receipt Date: 20060207
  Transmission Date: 20070319
  Serious: No
  Sender: FDA-Public Use
  Company Number: US-GLAXOSMITHKLINE-A0592640A

PATIENT
  Age: 58 Year
  Sex: Female

DRUGS (3)
  1. NICODERM CQ [Suspect]
     Dates: start: 20060106
  2. NICODERM CQ [Suspect]
  3. NICODERM CQ [Suspect]

REACTIONS (3)
  - INSOMNIA [None]
  - LACRIMATION INCREASED [None]
  - OCULAR HYPERAEMIA [None]
